FAERS Safety Report 8772879 (Version 1)
Quarter: 2012Q4

REPORT INFORMATION
  Report Type: 
  Country: US (occurrence: US)
  Receive Date: 20120907
  Receipt Date: 20120907
  Transmission Date: 20130627
  Serious: Yes (Hospitalization)
  Sender: FDA-Public Use
  Company Number: US-PFIZER INC-2012219249

PATIENT
  Age: 46 Year
  Sex: Male
  Weight: 79.82 kg

DRUGS (3)
  1. RAPAMUNE [Suspect]
     Indication: RENAL DISORDER
     Dosage: 1 mg, 1x/day
     Route: 048
  2. TOPROL XL [Concomitant]
     Indication: HYPERTENSION
     Dosage: UNK
  3. VERAPAMIL [Concomitant]
     Dosage: UNK

REACTIONS (1)
  - Cerebrovascular accident [Recovered/Resolved]
